FAERS Safety Report 8682241 (Version 3)
Quarter: 2012Q4

REPORT INFORMATION
  Report Type: 
  Country: AU (occurrence: AU)
  Receive Date: 20120725
  Receipt Date: 20120905
  Transmission Date: 20130627
  Serious: Yes (Death)
  Sender: FDA-Public Use
  Company Number: AU-B.I. PHARMACEUTICALS,INC./RIDGEFIELD-2012-AU-01287AU

PATIENT
  Age: 84 Year
  Sex: Female
  Weight: 67.9 kg

DRUGS (12)
  1. PRADAXA [Suspect]
     Indication: CEREBROVASCULAR ACCIDENT PROPHYLAXIS
     Dosage: 220 mg
     Dates: start: 20110712
  2. PRADAXA [Suspect]
     Indication: ATRIAL FIBRILLATION
  3. ATACAND [Concomitant]
     Indication: HYPERTENSION
     Dosage: 16 mg
  4. AVANZA SOLTAB [Concomitant]
     Indication: DEPRESSION
     Dosage: 30 mg
  5. FEBRIDOL [Concomitant]
     Indication: ARTHRITIS
     Dosage: 4000 mg
  6. LANOXIN-PG [Concomitant]
     Indication: ATRIAL FIBRILLATION
     Dosage: 130 mcg
  7. NORSPAN [Concomitant]
     Indication: ARTHRITIS
     Dosage: 20mcg/hour patch
  8. OROXINE [Concomitant]
     Indication: HYPOTHYROIDISM
     Dosage: 100 mcg
  9. PERINDO [Concomitant]
     Indication: HYPERTENSION
     Dosage: 4 mg
  10. PRAVACHOL [Concomitant]
     Indication: BLOOD CHOLESTEROL INCREASED
     Dosage: 40 mg
  11. SYMBICORT TURBUHALER [Concomitant]
     Indication: CHRONIC OBSTRUCTIVE PULMONARY DISEASE
     Dosage: 200/6 mcg twice daily
  12. TOPROL XL [Concomitant]
     Indication: CARDIAC FAILURE CONGESTIVE
     Dosage: 95 mg

REACTIONS (5)
  - Embolic stroke [Fatal]
  - Peripheral artery thrombosis [Fatal]
  - Hemiparesis [Unknown]
  - Vomiting [Unknown]
  - Aspiration [Unknown]
